FAERS Safety Report 9828065 (Version 1)
Quarter: 2014Q1

REPORT INFORMATION
  Report Type: Spontaneous
  Country: US (occurrence: US)
  Receive Date: 20140117
  Receipt Date: 20140117
  Transmission Date: 20141002
  Serious: No
  Sender: FDA-Public Use
  Company Number: US-GILEAD-2010-0031957

PATIENT
  Age: 25 Year
  Sex: Male

DRUGS (4)
  1. ATRIPLA [Suspect]
     Indication: HIV INFECTION
     Dates: start: 20100828
  2. DEXTRAM [Concomitant]
     Dates: start: 20100825
  3. FLUCONAZOLE [Concomitant]
     Dates: start: 20100825
  4. ONDANSETRON [Concomitant]
     Indication: VOMITING

REACTIONS (3)
  - Nausea [Unknown]
  - Vomiting [Unknown]
  - Migraine [Unknown]
